FAERS Safety Report 6300912-8 (Version None)
Quarter: 2009Q3

REPORT INFORMATION
  Report Type: 
  Country: None (occurrence: None)
  Receive Date: 20090807
  Receipt Date: 20090723
  Transmission Date: 20100115
  Serious: Yes (Hospitalization)
  Sender: FDA-Public Use
  Company Number: US-JNJFOC-20090801043

PATIENT
  Age: 44 Year
  Sex: Male
  Weight: 85.1 kg

DRUGS (25)
  1. DARUNAVIR [Suspect]
     Indication: HIV INFECTION
     Route: 048
  2. MARAVIROC [Suspect]
     Indication: HIV INFECTION
     Route: 048
  3. RALTEGRAVIR [Suspect]
     Indication: HIV INFECTION
     Route: 048
  4. NORVIR [Suspect]
     Indication: HIV INFECTION
     Route: 048
  5. EMTRICITABINE AND TENOFOVIR DISOPROXIL FUMARATE [Suspect]
     Indication: HIV INFECTION
     Route: 048
  6. REGLAN [Concomitant]
     Route: 048
  7. TESTOSTERONE [Concomitant]
  8. INSULIN [Concomitant]
  9. TENORMIN [Concomitant]
     Route: 048
  10. WELLBUTRIN XL [Concomitant]
     Route: 048
  11. PAXIL [Concomitant]
     Route: 048
  12. PERIDEX [Concomitant]
     Route: 048
  13. CYANOCOBALAMIN [Concomitant]
     Route: 030
  14. BENADRYL [Concomitant]
     Route: 048
  15. DIFLUCAN [Concomitant]
     Route: 048
  16. IBU-TAB [Concomitant]
     Route: 048
  17. DAPSONE [Concomitant]
     Route: 048
  18. VALCYTE [Concomitant]
     Route: 048
  19. MIRALAX [Concomitant]
  20. AMBIEN CR [Concomitant]
     Route: 048
  21. NYSTATIN/TRIAMCINOLONE [Concomitant]
  22. CIALIS [Concomitant]
     Route: 048
  23. NEXIUM [Concomitant]
     Route: 048
  24. CALCIUM/MAGNESIUM [Concomitant]
     Route: 048
  25. NASONEX [Concomitant]

REACTIONS (3)
  - ILEITIS [None]
  - IMMUNE RECONSTITUTION SYNDROME [None]
  - MYCOBACTERIUM AVIUM COMPLEX INFECTION [None]
